FAERS Safety Report 9999283 (Version 1)
Quarter: 2014Q1

REPORT INFORMATION
  Report Type: Spontaneous
  Country: ES (occurrence: None)
  Receive Date: 20140310
  Receipt Date: 20140310
  Transmission Date: 20141002
  Serious: No
  Sender: FDA-Public Use
  Company Number: B0974747A

PATIENT
  Age: 78 Year
  Sex: Male

DRUGS (5)
  1. SALBUTAMOL SULPHATE [Suspect]
     Indication: NASOPHARYNGITIS
     Route: 055
  2. OXYGEN [Concomitant]
  3. TIOTROPIUM [Concomitant]
  4. BUDESONIDE [Concomitant]
  5. SALMETEROL XINAFOATE [Concomitant]

REACTIONS (4)
  - Acute coronary syndrome [None]
  - Sinus tachycardia [None]
  - Bundle branch block right [None]
  - Electrocardiogram T wave inversion [None]
